FAERS Safety Report 5115140-1 (Version None)
Quarter: 2006Q3

REPORT INFORMATION
  Report Type: 
  Country: None (occurrence: None)
  Receive Date: 20060922
  Receipt Date: 20060914
  Transmission Date: 20061208
  Serious: Yes (Hospitalization, Other)
  Sender: FDA-Public Use
  Company Number: 2006111380

PATIENT
  Age: 43 Year
  Sex: Male
  Weight: 159.6662 kg

DRUGS (8)
  1. LIPITOR [Suspect]
     Indication: BLOOD CHOLESTEROL INCREASED
     Dosage: 20 MG (20 MG, 1 IN 1 D)
     Dates: start: 20050310, end: 20050701
  2. GLUCOPHAGE [Suspect]
     Indication: DIABETES MELLITUS NON-INSULIN-DEPENDENT
     Dosage: 1000 MG, (1000 MG, 1 IN 1D)
     Dates: start: 20050301, end: 20050721
  3. NOVOLOG [Concomitant]
  4. LANTUS [Concomitant]
  5. RISPERIDONE [Concomitant]
  6. ALL OTHER THERAPEUTIC PRODUCTS (ALL OTHER THERAPEUTIC PRODUCTS) [Concomitant]
  7. PROTONIX [Concomitant]
  8. SYNTHROID [Concomitant]

REACTIONS (8)
  - ABASIA [None]
  - BLOOD SODIUM DECREASED [None]
  - CONVULSION [None]
  - DRUG HYPERSENSITIVITY [None]
  - DRUG INTERACTION [None]
  - MUSCULAR WEAKNESS [None]
  - PAIN [None]
  - RENAL FAILURE ACUTE [None]
